FAERS Safety Report 7153114-X (Version None)
Quarter: 2010Q4

REPORT INFORMATION
  Report Type: 
  Country: None (occurrence: None)
  Receive Date: 20101213
  Receipt Date: 20101130
  Transmission Date: 20110411
  Serious: Yes (Other)
  Sender: FDA-Public Use
  Company Number: PHHY2010BR75934

PATIENT
  Sex: Female

DRUGS (1)
  1. DIOVAN [Suspect]
     Indication: HYPERTENSION
     Dosage: ONE TABLET (80 MG)
     Route: 048
     Dates: start: 20101105

REACTIONS (5)
  - FUNGAL INFECTION [None]
  - HYPERSENSITIVITY [None]
  - MASS [None]
  - PRURITUS [None]
  - RASH MACULO-PAPULAR [None]
